FAERS Safety Report 20165450 (Version 1)
Quarter: 2021Q4

REPORT INFORMATION
  Report Type: Spontaneous
  Country: TW (occurrence: TW)
  Receive Date: 20211209
  Receipt Date: 20211209
  Transmission Date: 20220303
  Serious: Yes (Hospitalization)
  Sender: FDA-Public Use
  Company Number: TW-PFIZER INC-202101659157

PATIENT
  Age: 68 Year
  Sex: Male

DRUGS (2)
  1. XYNTHA [Suspect]
     Active Substance: ANTIHEMOPHILIC FACTOR, HUMAN RECOMBINANT RESIDUES 743-1636 DELETED
     Indication: Factor VIII deficiency
     Dosage: 2000 IU
     Route: 042
  2. XYNTHA [Suspect]
     Active Substance: ANTIHEMOPHILIC FACTOR, HUMAN RECOMBINANT RESIDUES 743-1636 DELETED
     Indication: Prophylaxis

REACTIONS (2)
  - Femoral neck fracture [Unknown]
  - Fall [Unknown]

NARRATIVE: CASE EVENT DATE: 20211125
